FAERS Safety Report 9201893 (Version 1)
Quarter: 2013Q2

REPORT INFORMATION
  Report Type: Spontaneous
  Country: US (occurrence: US)
  Receive Date: 20130401
  Receipt Date: 20130401
  Transmission Date: 20140414
  Serious: Yes (Hospitalization)
  Sender: FDA-Public Use
  Company Number: US-BAYER-2013-036855

PATIENT
  Age: 39 Year
  Sex: Female

DRUGS (19)
  1. YAZ [Suspect]
  2. FLUCONAZOLE [Concomitant]
  3. NEXIUM [Concomitant]
  4. OMEPRAZOLE [Concomitant]
  5. GYNAZOLE [Concomitant]
  6. GLYBURIDE/METFORMIN [Concomitant]
  7. HYDROCHLOROTHIAZIDE WITH TRIAMTERENE [Concomitant]
  8. LEVAQUIN [Concomitant]
  9. HUMIBID [Concomitant]
  10. QUALAQUIN [Concomitant]
  11. SKELAXIN [Concomitant]
  12. MELOXICAM [Concomitant]
  13. GABAPENTIN [Concomitant]
  14. ACTOS [Concomitant]
  15. MAGNESIUM [Concomitant]
  16. ZOVIRAX [Concomitant]
  17. LASIX [Concomitant]
  18. K-DUR [Concomitant]
  19. HYDROCODONE [Concomitant]

REACTIONS (1)
  - Deep vein thrombosis [Recovered/Resolved]
